FAERS Safety Report 16352886 (Version 2)
Quarter: 2019Q2

REPORT INFORMATION
  Report Type: Spontaneous
  Country: US (occurrence: US)
  Receive Date: 20190524
  Receipt Date: 20190628
  Transmission Date: 20190711
  Serious: No
  Sender: FDA-Public Use
  Company Number: US-PFIZER INC-2019217017

PATIENT
  Age: 67 Year
  Sex: Female

DRUGS (1)
  1. LYRICA [Suspect]
     Active Substance: PREGABALIN
     Indication: PAIN IN EXTREMITY
     Dosage: 75 MG, 2X/DAY
     Dates: start: 20150502

REACTIONS (6)
  - Back pain [Recovered/Resolved]
  - Arthritis [Not Recovered/Not Resolved]
  - Visual impairment [Unknown]
  - Spondylitis [Not Recovered/Not Resolved]
  - Migraine [Recovered/Resolved]
  - Exostosis [Not Recovered/Not Resolved]

NARRATIVE: CASE EVENT DATE: 20190419
